FAERS Safety Report 13269867 (Version 1)
Quarter: 2017Q1

REPORT INFORMATION
  Report Type: Report from Study
  Country: US (occurrence: US)
  Receive Date: 20170224
  Receipt Date: 20170224
  Transmission Date: 20170428
  Serious: Yes (Death, Hospitalization)
  Sender: FDA-Public Use
  Company Number: US-PFIZER INC-US-WYE-H03638608

PATIENT
  Age: 51 Year
  Sex: Male
  Weight: 104 kg

DRUGS (8)
  1. METOPROLOL. [Concomitant]
     Active Substance: METOPROLOL
     Route: 048
  2. BORTEZOMIB [Suspect]
     Active Substance: BORTEZOMIB
     Dosage: 1.6 MG/M2, WEEKLY
     Route: 042
     Dates: start: 20080325, end: 20080408
  3. ADVAIR HFA [Concomitant]
     Active Substance: FLUTICASONE PROPIONATE\SALMETEROL XINAFOATE
     Route: 055
  4. OXYCODONE [Concomitant]
     Active Substance: OXYCODONE
     Route: 048
  5. TEMSIROLIMUS [Suspect]
     Active Substance: TEMSIROLIMUS
     Indication: PLASMA CELL MYELOMA
     Dosage: 25.0 MG/M2, WEEKLY
     Route: 042
     Dates: start: 20080325, end: 20080408
  6. AMOXICILLIN. [Concomitant]
     Active Substance: AMOXICILLIN
     Route: 048
  7. NEURONTIN [Concomitant]
     Active Substance: GABAPENTIN
     Route: 048
  8. VALTREX [Concomitant]
     Active Substance: VALACYCLOVIR HYDROCHLORIDE
     Route: 048

REACTIONS (6)
  - Neutropenic sepsis [Fatal]
  - Septic shock [Fatal]
  - Pleural effusion [Unknown]
  - Pneumonia [Unknown]
  - Acute respiratory failure [Unknown]
  - Myocardial infarction [Fatal]

NARRATIVE: CASE EVENT DATE: 20080411
